FAERS Safety Report 17289399 (Version 2)
Quarter: 2020Q4

REPORT INFORMATION
  Report Type: Spontaneous
  Country: IE (occurrence: IE)
  Receive Date: 20200120
  Receipt Date: 20201016
  Transmission Date: 20210113
  Serious: Yes (Death, Other)
  Sender: FDA-Public Use
  Company Number: IE-JNJFOC-20200118719

PATIENT
  Age: 0 Day
  Sex: Female
  Weight: 1.53 kg

DRUGS (1)
  1. RIVAROXABAN [Suspect]
     Active Substance: RIVAROXABAN
     Indication: PRODUCT USED FOR UNKNOWN INDICATION
     Dosage: 2.5 MG, UNK
     Route: 064

REACTIONS (7)
  - Bradycardia foetal [Unknown]
  - Foetal heart rate deceleration abnormality [Unknown]
  - Floppy infant [Unknown]
  - Foetal distress syndrome [Unknown]
  - Pulmonary hypoplasia [Fatal]
  - Foetal exposure during pregnancy [Unknown]
  - Skin discolouration [Unknown]

NARRATIVE: CASE EVENT DATE: 20190923
